FAERS Safety Report 9142270 (Version 2)
Quarter: 2013Q1

REPORT INFORMATION
  Report Type: Spontaneous
  Country: US (occurrence: US)
  Receive Date: 20130305
  Receipt Date: 20130311
  Transmission Date: 20140127
  Serious: Yes (Other)
  Sender: FDA-Public Use
  Company Number: US-009507513-1303USA001452

PATIENT
  Sex: Male
  Weight: 105.21 kg

DRUGS (2)
  1. PEG-INTRON [Suspect]
     Indication: HEPATITIS C
     Dosage: REDIPEN
     Dates: start: 20130222, end: 20130301
  2. RIBAVIRIN [Suspect]
     Indication: HEPATITIS C
     Dosage: UNK
     Route: 048
     Dates: start: 20130222, end: 20130301

REACTIONS (12)
  - Hallucination [Unknown]
  - Confusional state [Unknown]
  - Dysgeusia [Unknown]
  - Visual impairment [Unknown]
  - Insomnia [Unknown]
  - Memory impairment [Unknown]
  - Insomnia [Unknown]
  - Psychomotor hyperactivity [Unknown]
  - Disturbance in attention [Unknown]
  - Fatigue [Unknown]
  - Headache [Unknown]
  - Nausea [Unknown]
